FAERS Safety Report 18631224 (Version 1)
Quarter: 2020Q4

REPORT INFORMATION
  Report Type: Spontaneous
  Country: JP (occurrence: JP)
  Receive Date: 20201218
  Receipt Date: 20201218
  Transmission Date: 20210114
  Serious: Yes (Other)
  Sender: FDA-Public Use
  Company Number: JP-TAKEDA-2020TJP027649

PATIENT
  Age: 70 Year
  Sex: Male

DRUGS (3)
  1. ADYNOVATE [Suspect]
     Active Substance: ANTIHEMOPHILIC FACTOR, HUMAN RECOMBINANT
     Indication: FACTOR VIII DEFICIENCY
     Dosage: 4000 INTERNATIONAL UNIT, 2/WEEK
     Route: 042
  2. ADYNOVATE [Suspect]
     Active Substance: ANTIHEMOPHILIC FACTOR, HUMAN RECOMBINANT
     Indication: FACTOR VIII DEFICIENCY
     Dosage: 4000 INTERNATIONAL UNIT, 2/WEEK
     Route: 042
  3. ADYNOVATE [Suspect]
     Active Substance: ANTIHEMOPHILIC FACTOR, HUMAN RECOMBINANT
     Indication: FACTOR VIII DEFICIENCY
     Dosage: 4000 INTERNATIONAL UNIT, 2/WEEK
     Route: 042

REACTIONS (1)
  - Haemophilic arthropathy [Recovering/Resolving]

NARRATIVE: CASE EVENT DATE: 20201120
